FAERS Safety Report 14656872 (Version 1)
Quarter: 2018Q1

REPORT INFORMATION
  Report Type: Spontaneous
  Country: US (occurrence: US)
  Receive Date: 20180319
  Receipt Date: 20180319
  Transmission Date: 20180509
  Serious: No
  Sender: FDA-Public Use
  Company Number: US-SA-2017SA110589

PATIENT
  Age: 31 Year
  Sex: Female

DRUGS (3)
  1. NASACORT ALLERGY 24HR [Suspect]
     Active Substance: TRIAMCINOLONE ACETONIDE
     Indication: SEASONAL ALLERGY
     Dosage: 1 SQUIRTS IN EACH NOSTRIL DAILY?FORM-NASAL SPRAY
     Route: 045
     Dates: start: 20170614, end: 20170614
  2. NASACORT ALLERGY 24HR [Suspect]
     Active Substance: TRIAMCINOLONE ACETONIDE
     Indication: SEASONAL ALLERGY
     Dosage: 1 SQUIRTS IN EACH NOSTRIL DAILY?FORM-NASAL SPRAY
     Route: 045
     Dates: start: 20170612, end: 20170612
  3. NASACORT ALLERGY 24HR [Suspect]
     Active Substance: TRIAMCINOLONE ACETONIDE
     Indication: SEASONAL ALLERGY
     Dosage: 2 SQUIRTS IN EACH NOSTRIL DAILY?FORM-NASAL SPRAY
     Route: 045
     Dates: start: 20170608, end: 20170608

REACTIONS (2)
  - Mouth swelling [Not Recovered/Not Resolved]
  - Throat irritation [Not Recovered/Not Resolved]
